FAERS Safety Report 4860752-3 (Version None)
Quarter: 2005Q4

REPORT INFORMATION
  Report Type: 
  Country: None (occurrence: None)
  Receive Date: 20051220
  Receipt Date: 20030210
  Transmission Date: 20060501
  Serious: Yes (Hospitalization, Other)
  Sender: FDA-Public Use
  Company Number: US-BRISTOL-MYERS SQUIBB COMPANY-12182010

PATIENT
  Age: 72 Year
  Sex: Male
  Weight: 61 kg

DRUGS (15)
  1. TEQUIN [Suspect]
     Indication: PNEUMONIA
     Route: 048
     Dates: start: 20020719, end: 20020731
  2. HUMULIN N [Suspect]
     Indication: DIABETES MELLITUS INSULIN-DEPENDENT
     Dosage: 37 UNITS IN THE AM, 5 IN THE PM
     Route: 058
     Dates: start: 20020716, end: 20020801
  3. ENALAPRIL [Concomitant]
     Route: 048
     Dates: start: 20020715, end: 20020729
  4. WARFARIN [Concomitant]
     Route: 048
     Dates: start: 20020715, end: 20020801
  5. EPO [Concomitant]
     Route: 058
     Dates: start: 20020715, end: 20020801
  6. ASPIRIN [Concomitant]
     Route: 048
     Dates: start: 20020717, end: 20020801
  7. METOPROLOL [Concomitant]
     Route: 048
     Dates: start: 20020716, end: 20020801
  8. CALCITONIN [Concomitant]
     Route: 058
     Dates: start: 20020720, end: 20020801
  9. ALENDRONATE SODIUM [Concomitant]
     Route: 048
     Dates: start: 20020724, end: 20020801
  10. VITAMIN D [Concomitant]
     Route: 048
  11. IPRATROPIUM BROMIDE [Concomitant]
     Dosage: DOSE CHANGED UPON DISCHARGE
     Route: 055
  12. CA CO3 [Concomitant]
     Route: 048
     Dates: start: 20020724, end: 20020801
  13. EPREX [Concomitant]
     Route: 058
  14. NPH INSULIN [Concomitant]
     Route: 058
  15. IPRATROPIUM BROMIDE [Concomitant]
     Route: 055

REACTIONS (1)
  - HYPOGLYCAEMIA [None]
